FAERS Safety Report 7591430-8 (Version None)
Quarter: 2011Q3

REPORT INFORMATION
  Report Type: 
  Country: None (occurrence: None)
  Receive Date: 20110701
  Receipt Date: 20110701
  Transmission Date: 20111222
  Serious: No
  Sender: FDA-Public Use
  Company Number: None

PATIENT
  Age: 78 Year
  Sex: Female
  Weight: 68.4 kg

DRUGS (1)
  1. TECHNETIUM TC-99M MEBROFENIN [Suspect]
     Indication: BILE DUCT OBSTRUCTION
     Dosage: RADIOPHARM 5.12 MILLICL 1 INTRAVENOUS (IV) 042
     Route: 042
     Dates: start: 20110606, end: 20110613

REACTIONS (1)
  - PRODUCT DISTRIBUTION ISSUE [None]
